FAERS Safety Report 5980414-9 (Version None)
Quarter: 2008Q4

REPORT INFORMATION
  Report Type: 
  Country: None (occurrence: None)
  Receive Date: 20081205
  Receipt Date: 20071126
  Transmission Date: 20090506
  Serious: No
  Sender: FDA-Public Use
  Company Number: A0695821A

PATIENT
  Age: 42 Year
  Sex: Female

DRUGS (1)
  1. COMMIT [Suspect]
     Dates: start: 20071119, end: 20071119

REACTIONS (5)
  - CHOKING SENSATION [None]
  - DYSPNOEA [None]
  - PRODUCTIVE COUGH [None]
  - THROAT IRRITATION [None]
  - THROAT TIGHTNESS [None]
